FAERS Safety Report 4423292-1 (Version None)
Quarter: 2004Q3

REPORT INFORMATION
  Report Type: 
  Country: None (occurrence: None)
  Receive Date: 20040811
  Receipt Date: 20040804
  Transmission Date: 20050211
  Serious: Yes (Hospitalization)
  Sender: FDA-Public Use
  Company Number: ES-GLAXOSMITHKLINE-A0521391A

PATIENT
  Age: 64 Year
  Sex: Female

DRUGS (1)
  1. NAVELBINE [Suspect]
     Dosage: 42MG PER DAY
     Route: 042
     Dates: start: 20021108, end: 20030123

REACTIONS (5)
  - DIZZINESS [None]
  - FACIAL PALSY [None]
  - HYPOACUSIS [None]
  - MYALGIA [None]
  - VOMITING [None]
